FAERS Safety Report 6145768-1 (Version None)
Quarter: 2009Q2

REPORT INFORMATION
  Report Type: 
  Country: None (occurrence: None)
  Receive Date: 20090406
  Receipt Date: 20090406
  Transmission Date: 20091009
  Serious: Yes (Hospitalization)
  Sender: FDA-Public Use
  Company Number: None

PATIENT
  Age: 26 Year
  Sex: Male
  Weight: 107.5025 kg

DRUGS (1)
  1. ABILIFY [Suspect]
     Indication: SCHIZOPHRENIA
     Dosage: 10 MG. TO 30 MG. ONE A DAY DAILY
     Dates: start: 20030101, end: 20090101

REACTIONS (16)
  - BACK PAIN [None]
  - CONFUSIONAL STATE [None]
  - DEPRESSION [None]
  - DISTURBANCE IN ATTENTION [None]
  - DYSKINESIA [None]
  - HALLUCINATION [None]
  - HALLUCINATION, VISUAL [None]
  - MENTAL DISORDER [None]
  - MUSCLE SPASMS [None]
  - MUSCULAR WEAKNESS [None]
  - NERVOUS SYSTEM DISORDER [None]
  - PELVIC PAIN [None]
  - SCHIZOPHRENIA [None]
  - STUPOR [None]
  - SUICIDAL IDEATION [None]
  - VISION BLURRED [None]
